FAERS Safety Report 12324014 (Version 1)
Quarter: 2016Q2

REPORT INFORMATION
  Report Type: Spontaneous
  Country: US (occurrence: US)
  Receive Date: 20160502
  Receipt Date: 20160502
  Transmission Date: 20160815
  Serious: No
  Sender: FDA-Public Use
  Company Number: US-ABBVIE-15P-163-1395105-00

PATIENT
  Sex: Male
  Weight: 76.27 kg

DRUGS (1)
  1. ANDROGEL [Suspect]
     Active Substance: TESTOSTERONE
     Indication: PRODUCT USED FOR UNKNOWN INDICATION
     Dosage: 5 PUMPS
     Route: 061

REACTIONS (2)
  - Drug administered at inappropriate site [Not Recovered/Not Resolved]
  - Application site pruritus [Not Recovered/Not Resolved]
